FAERS Safety Report 5911103-4 (Version None)
Quarter: 2008Q4

REPORT INFORMATION
  Report Type: 
  Country: None (occurrence: None)
  Receive Date: 20081007
  Receipt Date: 20071205
  Transmission Date: 20090506
  Serious: Yes (Hospitalization)
  Sender: FDA-Public Use
  Company Number: US-BRISTOL-MYERS SQUIBB COMPANY-14013817

PATIENT
  Sex: Male

DRUGS (5)
  1. PRINIVIL [Suspect]
     Indication: RENAL FAILURE
     Route: 048
  2. PRINIVIL [Suspect]
     Indication: DIABETES MELLITUS
     Route: 048
  3. AVAPRO [Suspect]
     Indication: DIABETES MELLITUS
     Route: 048
  4. AVAPRO [Suspect]
     Indication: RENAL FAILURE
     Route: 048
  5. SPIRIVA [Suspect]
     Indication: CHRONIC OBSTRUCTIVE PULMONARY DISEASE
     Route: 048
     Dates: start: 20070416, end: 20070426

REACTIONS (1)
  - ANGIOEDEMA [None]
